FAERS Safety Report 7290661-4 (Version None)
Quarter: 2011Q1

REPORT INFORMATION
  Report Type: 
  Country: None (occurrence: None)
  Receive Date: 20110210
  Receipt Date: 20110210
  Transmission Date: 20110831
  Serious: Yes (Other)
  Sender: FDA-Public Use
  Company Number: None

PATIENT
  Age: 51 Year
  Sex: Female
  Weight: 54.8852 kg

DRUGS (1)
  1. AZASITE [Suspect]
     Indication: CHALAZION
     Dosage: 1 DROP ONCE/DAY OPHTHALMIC
     Route: 047
     Dates: start: 20101219, end: 20110206

REACTIONS (11)
  - INSTILLATION SITE PAIN [None]
  - INSTILLATION SITE ERYTHEMA [None]
  - INSTILLATION SITE PRURITUS [None]
  - INSTILLATION SITE FOREIGN BODY SENSATION [None]
  - BLEPHARITIS [None]
  - INSTILLATION SITE IRRITATION [None]
  - EYELID OEDEMA [None]
  - EYE BURNS [None]
  - VISION BLURRED [None]
  - INSTILLATION SITE ABNORMAL SENSATION [None]
  - EYE INFLAMMATION [None]
